FAERS Safety Report 20554859 (Version 1)
Quarter: 2022Q1

REPORT INFORMATION
  Report Type: Spontaneous
  Country: US (occurrence: US)
  Receive Date: 20220304
  Receipt Date: 20220304
  Transmission Date: 20220424
  Serious: No
  Sender: FDA-Public Use
  Company Number: US-ANIPHARMA-2021-US-007604

PATIENT
  Sex: 0

DRUGS (1)
  1. BICALUTAMIDE [Suspect]
     Active Substance: BICALUTAMIDE
     Indication: Product used for unknown indication
     Route: 065

REACTIONS (6)
  - Pruritus [Unknown]
  - Urticaria [Unknown]
  - Face oedema [Unknown]
  - Oedema peripheral [Unknown]
  - Rash [Unknown]
  - Drug hypersensitivity [Unknown]
